FAERS Safety Report 8525149-3 (Version None)
Quarter: 2012Q3

REPORT INFORMATION
  Report Type: 
  Country: None (occurrence: None)
  Receive Date: 20120720
  Receipt Date: 20120705
  Transmission Date: 20120928
  Serious: Yes (Other)
  Sender: FDA-Public Use
  Company Number: PHHY2005BR03142

PATIENT
  Sex: Male

DRUGS (8)
  1. DIOVAN HCT [Suspect]
     Indication: HYPERTENSION
     Dosage: (VALS 160 MG AND HCTZ 12.5 MG)
  2. ZOLADEX [Concomitant]
     Indication: NEOPLASM MALIGNANT
  3. MANIVASC [Concomitant]
     Indication: BLOOD PRESSURE MANAGEMENT
     Dosage: 1 DF, DAILY
     Route: 048
  4. METFORMIN HYDROCHLORIDE [Concomitant]
     Indication: DIABETES MELLITUS
     Dosage: 2 DF, DAILY
     Route: 048
     Dates: start: 20110701
  5. DIOVAN HCT [Suspect]
     Dosage: 1 DF(VALS 320 MG AND 12.5 MG HCTZ), DAILY
     Route: 048
     Dates: end: 20110901
  6. SERTRALINE HYDROCHLORIDE [Concomitant]
     Indication: DEPRESSION
     Dosage: 1 DF, DAILY
     Route: 048
  7. OLCADIL [Concomitant]
     Indication: ANXIETY
     Dosage: 0.5 DF, UNK
     Route: 048
  8. INDAPAMIDE [Concomitant]
     Indication: BLOOD PRESSURE ABNORMAL
     Dosage: 1 DF, DAILY
     Route: 048

REACTIONS (3)
  - DIABETES MELLITUS [None]
  - GLAUCOMA [None]
  - MUSCLE SPASMS [None]
